FAERS Safety Report 18989899 (Version 1)
Quarter: 2021Q1

REPORT INFORMATION
  Report Type: Spontaneous
  Country: VN (occurrence: VN)
  Receive Date: 20210309
  Receipt Date: 20210309
  Transmission Date: 20210420
  Serious: Yes (Other)
  Sender: FDA-Public Use
  Company Number: VN-ROCHE-2778165

PATIENT
  Age: 58 Year
  Sex: Female

DRUGS (2)
  1. CARBOPLATIN;PACLITAXEL [Suspect]
     Active Substance: CARBOPLATIN\PACLITAXEL
     Indication: PRODUCT USED FOR UNKNOWN INDICATION
     Route: 065
  2. AVASTIN [Suspect]
     Active Substance: BEVACIZUMAB
     Indication: OVARIAN CANCER
     Route: 065
     Dates: end: 20200723

REACTIONS (8)
  - Hepatic steatosis [Unknown]
  - Renal hamartoma [Unknown]
  - Adenocarcinoma [Unknown]
  - Renal mass [Unknown]
  - Therapy partial responder [Unknown]
  - Neoplasm [Unknown]
  - Uterine leiomyoma [Unknown]
  - Hypoaesthesia [Unknown]
